FAERS Safety Report 4906604-1 (Version None)
Quarter: 2006Q1

REPORT INFORMATION
  Report Type: 
  Country: None (occurrence: None)
  Receive Date: 20060209
  Receipt Date: 20060208
  Transmission Date: 20060701
  Serious: Yes (Hospitalization)
  Sender: FDA-Public Use
  Company Number: US-GLAXOSMITHKLINE-A0592833A

PATIENT
  Sex: Male

DRUGS (2)
  1. COMBIVIR [Suspect]
     Indication: HIV INFECTION
     Route: 048
  2. SUSTIVA [Suspect]
     Indication: HIV INFECTION
     Route: 065

REACTIONS (9)
  - BLINDNESS [None]
  - DIFFICULTY IN WALKING [None]
  - GLAUCOMA [None]
  - MALAISE [None]
  - MENINGITIS [None]
  - NEUROMYELITIS OPTICA [None]
  - PARALYSIS [None]
  - THERAPEUTIC RESPONSE UNEXPECTED [None]
  - VIRAL LOAD INCREASED [None]
